FAERS Safety Report 4424199-6 (Version None)
Quarter: 2004Q3

REPORT INFORMATION
  Report Type: 
  Country: None (occurrence: None)
  Receive Date: 20040812
  Receipt Date: 20040803
  Transmission Date: 20050211
  Serious: Yes (Life-Threatening, Hospitalization, Disabling)
  Sender: FDA-Public Use
  Company Number: 200417757GDDC

PATIENT
  Age: 88 Year
  Sex: Male
  Weight: 75 kg

DRUGS (2)
  1. RIFATER [Suspect]
     Indication: TUBERCULOSIS
     Route: 048
     Dates: start: 20040625, end: 20040627
  2. ISOSORBIDE MONONITRATE [Concomitant]
     Indication: RESTLESSNESS
     Route: 048
     Dates: start: 20040516, end: 20040626

REACTIONS (5)
  - AGITATION [None]
  - CONFUSIONAL STATE [None]
  - CONVULSION [None]
  - DEPRESSED LEVEL OF CONSCIOUSNESS [None]
  - RESTLESSNESS [None]
